FAERS Safety Report 8384162-X (Version None)
Quarter: 2012Q2

REPORT INFORMATION
  Report Type: 
  Country: None (occurrence: None)
  Receive Date: 20120524
  Receipt Date: 20120523
  Transmission Date: 20120825
  Serious: Yes (Death)
  Sender: FDA-Public Use
  Company Number: CN-ROCHE-1071384

PATIENT
  Sex: Male

DRUGS (3)
  1. STEROID NOS [Concomitant]
     Indication: LIVER TRANSPLANT
  2. CYCLOSPORINE [Concomitant]
     Indication: LIVER TRANSPLANT
  3. CELLCEPT [Suspect]
     Indication: LIVER TRANSPLANT
     Route: 048
     Dates: start: 20100401

REACTIONS (1)
  - DEATH [None]
